FAERS Safety Report 8523702-4 (Version None)
Quarter: 2012Q3

REPORT INFORMATION
  Report Type: 
  Country: None (occurrence: None)
  Receive Date: 20120720
  Receipt Date: 20120711
  Transmission Date: 20120928
  Serious: Yes (Other)
  Sender: FDA-Public Use
  Company Number: JP-JNJFOC-20120312930

PATIENT
  Sex: Female
  Weight: 48 kg

DRUGS (10)
  1. CYTOTEC [Concomitant]
     Route: 048
  2. RISEDRONATE SODIUM [Concomitant]
     Route: 048
  3. PREDNISOLONE [Concomitant]
     Route: 048
  4. FOLIAMIN [Concomitant]
     Route: 065
  5. RHEUMATREX [Suspect]
     Indication: PRODUCT USED FOR UNKNOWN INDICATION
     Route: 048
     Dates: start: 20120312
  6. LETRAC [Concomitant]
     Route: 048
  7. REMICADE [Suspect]
     Indication: RHEUMATOID ARTHRITIS
     Route: 042
  8. REMICADE [Suspect]
     Route: 042
     Dates: start: 20111124
  9. REMICADE [Suspect]
     Route: 042
     Dates: start: 20120301
  10. RHEUMATREX [Suspect]
     Route: 048
     Dates: start: 20090201, end: 20120311

REACTIONS (4)
  - PARESIS [None]
  - DEMYELINATION [None]
  - HERPES ZOSTER [None]
  - GAIT DISTURBANCE [None]
